FAERS Safety Report 10484045 (Version 2)
Quarter: 2014Q3

REPORT INFORMATION
  Report Type: Spontaneous
  Country: SE (occurrence: SE)
  Receive Date: 20140930
  Receipt Date: 20140930
  Transmission Date: 20150326
  Serious: Yes (Other)
  Sender: FDA-Public Use
  Company Number: SE-ALLERGAN-1420585US

PATIENT
  Age: 80 Year
  Sex: Female

DRUGS (11)
  1. IMOVANE 7,5 MG TABLETT [Concomitant]
  2. BOTOX [Suspect]
     Active Substance: ONABOTULINUMTOXINA
     Indication: AURICULOTEMPORAL SYNDROME
     Dosage: 0.1 ML X 9 VID PAROTIS V?NSTER
     Route: 023
     Dates: start: 20140821, end: 20140821
  3. TROMBYL 75 MG TABLETT [Concomitant]
  4. BEHEPAN [Concomitant]
     Active Substance: HYDROXOCOBALAMIN
  5. OXASCAND 10 MG TABLETT [Concomitant]
     Active Substance: OXAZEPAM
  6. CIPRALEX [Concomitant]
     Active Substance: ESCITALOPRAM OXALATE
  7. FURIX [Concomitant]
     Active Substance: FUROSEMIDE
  8. AMLODIPIN SANDOZ 5 MG TABLETT [Concomitant]
  9. VALSARTAN SANDOZ 80 MG FILMDRAGERAD TABLETT [Concomitant]
  10. OMEPRAZOL PENSA 20 MG ENTEROKAPSEL, HARD [Concomitant]
  11. VISCOTEARS [Concomitant]
     Active Substance: CARBOMER
     Indication: PRODUCT USED FOR UNKNOWN INDICATION

REACTIONS (3)
  - Dry eye [Not Recovered/Not Resolved]
  - Off label use [Unknown]
  - Nasal congestion [Not Recovered/Not Resolved]

NARRATIVE: CASE EVENT DATE: 20140822
